FAERS Safety Report 8013323-4 (Version None)
Quarter: 2011Q4

REPORT INFORMATION
  Report Type: 
  Country: None (occurrence: None)
  Receive Date: 20111229
  Receipt Date: 20111225
  Transmission Date: 20120403
  Serious: Yes (Death)
  Sender: FDA-Public Use
  Company Number: PHHY2011US112643

PATIENT
  Age: 66 Year
  Sex: Female

DRUGS (3)
  1. LIDOCAINE [Concomitant]
  2. AMIODARONE [Concomitant]
  3. METOPROLOL TARTRATE [Suspect]
     Indication: VENTRICULAR ARRHYTHMIA

REACTIONS (2)
  - DRUG INEFFECTIVE [None]
  - DEATH [None]
